FAERS Safety Report 13546138 (Version 1)
Quarter: 2017Q2

REPORT INFORMATION
  Report Type: Spontaneous
  Country: US (occurrence: US)
  Receive Date: 20170514
  Receipt Date: 20170514
  Transmission Date: 20170830
  Serious: Yes (Disabling)
  Sender: FDA-Public Use
  Company Number: None

PATIENT
  Age: 53 Year
  Sex: Male
  Weight: 76.5 kg

DRUGS (1)
  1. RISPERDAL [Suspect]
     Active Substance: RISPERIDONE
     Indication: PRODUCT USED FOR UNKNOWN INDICATION
     Dosage: ?          QUANTITY:1 TABLET(S);?
     Route: 048
     Dates: start: 20010601, end: 20010601

REACTIONS (7)
  - Pain [None]
  - Weight decreased [None]
  - Feeling abnormal [None]
  - Feeling hot [None]
  - Burning sensation [None]
  - Breast swelling [None]
  - Abdominal distension [None]

NARRATIVE: CASE EVENT DATE: 20121001
